FAERS Safety Report 19250176 (Version 2)
Quarter: 2021Q2

REPORT INFORMATION
  Report Type: Report from Study
  Country: AU (occurrence: AU)
  Receive Date: 20210512
  Receipt Date: 20210517
  Transmission Date: 20210717
  Serious: Yes (Other)
  Sender: FDA-Public Use
  Company Number: AU-PFIZER INC-2010035849

PATIENT
  Age: 38 Year
  Sex: Female

DRUGS (4)
  1. PREDNISOLONE. [Interacting]
     Active Substance: PREDNISOLONE
     Dosage: UNK
  2. THIETHYLPERAZINE [Interacting]
     Active Substance: THIETHYLPERAZINE
     Indication: NAUSEA
     Dosage: UNK
  3. INDOMETHACIN. [Interacting]
     Active Substance: INDOMETHACIN
     Indication: ANALGESIC THERAPY
     Dosage: UNK
  4. MORPHINE SULFATE. [Suspect]
     Active Substance: MORPHINE SULFATE
     Indication: ANALGESIC THERAPY
     Dosage: 640 MG, DAILY
     Route: 042

REACTIONS (2)
  - Myoclonus [Unknown]
  - Drug interaction [Unknown]
